FAERS Safety Report 9037830 (Version 2)
Quarter: 2013Q2

REPORT INFORMATION
  Report Type: Spontaneous
  Country: US (occurrence: US)
  Receive Date: 20130129
  Receipt Date: 20130501
  Transmission Date: 20140414
  Serious: No
  Sender: FDA-Public Use
  Company Number: US-009507513-1301USA012385

PATIENT
  Age: 57 Year
  Sex: Male
  Weight: 87.75 kg

DRUGS (6)
  1. PEGINTRON [Suspect]
     Indication: HEPATITIS C
     Dosage: UNK
     Route: 058
     Dates: start: 20120803, end: 20130315
  2. VICTRELIS [Suspect]
     Indication: HEPATITIS C
     Dosage: UNK
  3. RIBAVIRIN (WARRICK) [Suspect]
     Dosage: UNK
  4. ALBUTEROL [Concomitant]
  5. FLURAZEPAM [Concomitant]
     Route: 048
  6. ACETAMINOPHEN (+) OXYCODONE HYDROCHLORIDE [Concomitant]
     Route: 048

REACTIONS (11)
  - Injection site swelling [Recovering/Resolving]
  - Pyrexia [Recovered/Resolved]
  - Weight decreased [Recovering/Resolving]
  - Arthralgia [Recovering/Resolving]
  - Abdominal pain upper [Recovering/Resolving]
  - Swelling [Recovering/Resolving]
  - Decreased immune responsiveness [Recovering/Resolving]
  - Rash [Recovering/Resolving]
  - Confusional state [Recovering/Resolving]
  - Thinking abnormal [Recovering/Resolving]
  - Vision blurred [Recovered/Resolved]
